FAERS Safety Report 5577997-X (Version None)
Quarter: 2007Q4

REPORT INFORMATION
  Report Type: 
  Country: None (occurrence: None)
  Receive Date: 20071227
  Receipt Date: 20071210
  Transmission Date: 20080405
  Serious: Yes (Hospitalization)
  Sender: FDA-Public Use
  Company Number: 2005BI013316

PATIENT
  Age: 56 Year
  Sex: Male

DRUGS (2)
  1. AVONEX [Suspect]
     Indication: MULTIPLE SCLEROSIS
     Dosage: 30 UG;QW;IM
     Route: 030
     Dates: start: 19990801
  2. PROVIGIL [Concomitant]

REACTIONS (4)
  - ARM AMPUTATION [None]
  - MALIGNANT FIBROUS HISTIOCYTOMA [None]
  - SARCOMA [None]
  - SKIN GRAFT [None]
